FAERS Safety Report 5859988-4 (Version None)
Quarter: 2008Q3

REPORT INFORMATION
  Report Type: 
  Country: None (occurrence: None)
  Receive Date: 20080827
  Receipt Date: 20080819
  Transmission Date: 20090109
  Serious: Yes (Hospitalization)
  Sender: FDA-Public Use
  Company Number: US-ELI_LILLY_AND_COMPANY-US200808003865

PATIENT
  Sex: Male
  Weight: 59.41 kg

DRUGS (5)
  1. BYETTA [Suspect]
     Indication: TYPE 2 DIABETES MELLITUS
     Dosage: 5 UG, 2/D
     Route: 058
     Dates: start: 20070801
  2. METFORMIN HCL [Concomitant]
     Indication: DIABETES MELLITUS
     Dosage: 1000 MG, 2/D
     Route: 048
  3. GLIMEPIRIDE [Concomitant]
     Indication: DIABETES MELLITUS
     Dosage: 4 MG, DAILY (1/D)
     Route: 048
     Dates: start: 20060101
  4. PROTONIX [Concomitant]
     Indication: BARRETT'S OESOPHAGUS
     Dosage: UNK, UNKNOWN
     Dates: start: 20080701, end: 20080701
  5. PROTONIX [Concomitant]
     Dosage: UNK, UNKNOWN
     Dates: start: 20080801

REACTIONS (7)
  - CAROTID ARTERY OCCLUSION [None]
  - DECREASED APPETITE [None]
  - GASTRIC DISORDER [None]
  - GLYCOSYLATED HAEMOGLOBIN INCREASED [None]
  - MALAISE [None]
  - RASH [None]
  - WEIGHT DECREASED [None]
